FAERS Safety Report 24807536 (Version 2)
Quarter: 2025Q1

REPORT INFORMATION
  Report Type: Spontaneous
  Country: PT (occurrence: PT)
  Receive Date: 20250105
  Receipt Date: 20250117
  Transmission Date: 20250408
  Serious: Yes (Hospitalization)
  Sender: TEVA
  Company Number: PT-TEVA-VS-3282539

PATIENT
  Age: 70 Year
  Sex: Female

DRUGS (1)
  1. METHOTREXATE [Suspect]
     Active Substance: METHOTREXATE
     Indication: Neurodermatitis
     Dosage: FOR AN ENTIRE WEEK
     Route: 065

REACTIONS (6)
  - Toxicity to various agents [Recovering/Resolving]
  - Inappropriate schedule of product administration [Unknown]
  - Renal impairment [Recovering/Resolving]
  - Stomatitis [Recovering/Resolving]
  - Alopecia [Recovering/Resolving]
  - Myelosuppression [Recovering/Resolving]
